FAERS Safety Report 10341778 (Version 3)
Quarter: 2014Q3

REPORT INFORMATION
  Report Type: Report from Study
  Country: BR (occurrence: BR)
  Receive Date: 20140725
  Receipt Date: 20140729
  Transmission Date: 20150326
  Serious: Yes (Hospitalization)
  Sender: FDA-Public Use
  Company Number: BR-ROCHE-1342565

PATIENT
  Sex: Female
  Weight: 85 kg

DRUGS (7)
  1. INSULIN [Concomitant]
     Active Substance: INSULIN NOS
     Indication: DIABETES MELLITUS
  2. GLIFAGE [Concomitant]
     Active Substance: METFORMIN HYDROCHLORIDE
  3. NPH INSULIN [Concomitant]
     Active Substance: INSULIN BEEF
  4. LOSARTAN [Concomitant]
     Active Substance: LOSARTAN
     Indication: HYPERTENSION
     Route: 065
  5. BENERVA [Concomitant]
     Active Substance: THIAMINE
  6. RIVOTRIL [Concomitant]
     Active Substance: CLONAZEPAM
     Dosage: HALF TABLET/DAY
     Route: 065
  7. ACTEMRA [Suspect]
     Active Substance: TOCILIZUMAB
     Indication: RHEUMATOID ARTHRITIS
     Route: 065
     Dates: start: 20111201

REACTIONS (2)
  - Osteoarthritis [Recovering/Resolving]
  - Drug dose omission [Unknown]
